FAERS Safety Report 10024267 (Version 7)
Quarter: 2017Q4

REPORT INFORMATION
  Report Type: Spontaneous
  Country: US (occurrence: US)
  Receive Date: 20140320
  Receipt Date: 20171027
  Transmission Date: 20180320
  Serious: Yes (Hospitalization, Disabling)
  Sender: FDA-Public Use
  Company Number: US-PFIZER INC-2014079348

PATIENT
  Age: 56 Year
  Sex: Female
  Weight: 99.79 kg

DRUGS (33)
  1. LYRICA [Suspect]
     Active Substance: PREGABALIN
     Indication: NEUROPATHY PERIPHERAL
     Dosage: UNK
     Route: 048
     Dates: start: 2006
  2. METFORMIN [Concomitant]
     Active Substance: METFORMIN HYDROCHLORIDE
     Indication: TYPE 2 DIABETES MELLITUS
     Dosage: 1000 MG, 2X/DAY
     Route: 048
     Dates: start: 20160418
  3. POTASSIUM CHLORIDE. [Concomitant]
     Active Substance: POTASSIUM CHLORIDE
     Dosage: 10 MEQ, 2X/DAY
     Route: 048
     Dates: start: 20060106
  4. VALSARTAN AND HYDROCHLOROTHIAZIDE [Concomitant]
     Active Substance: HYDROCHLOROTHIAZIDE\VALSARTAN
     Dosage: 1 DF, 1X/DAY, [HYDROCHLOROTHIAZIDE 12.5 MG]/[VALSARTAN 160 MG]
     Route: 048
     Dates: start: 20161005
  5. NORCO [Concomitant]
     Active Substance: ACETAMINOPHEN\HYDROCODONE BITARTRATE
     Indication: PAIN
     Dosage: 2 DF, AS NEEDED, [HYDROCODONE BITARTRATE 400 MG] / [PARACETAMOL 5 MG]
     Route: 048
     Dates: start: 20160706
  6. CETIRIZINE [Concomitant]
     Active Substance: CETIRIZINE HYDROCHLORIDE
     Dosage: 10 MG, 1X/DAY
     Route: 048
     Dates: start: 20160418
  7. ZAROXOLYN [Concomitant]
     Active Substance: METOLAZONE
     Dosage: 5 MG, 2X/DAY
     Route: 048
     Dates: start: 20070910
  8. ALLOPURINOL. [Concomitant]
     Active Substance: ALLOPURINOL
     Dosage: 100 MG, DAILY
     Route: 048
     Dates: start: 20060713
  9. CELEBREX [Concomitant]
     Active Substance: CELECOXIB
     Dosage: 200 MG, DAILY
     Route: 048
     Dates: start: 20060713
  10. POTASSIUM [Concomitant]
     Active Substance: POTASSIUM
     Dosage: 20 MEQ, 2X/DAY
     Route: 048
     Dates: start: 20060713
  11. LYRICA [Suspect]
     Active Substance: PREGABALIN
     Indication: DIABETIC NEUROPATHY
     Dosage: 150 MG, 2X/DAY
     Route: 048
     Dates: start: 2006
  12. KAYEXALATE CALCIUM [Concomitant]
     Dosage: UNK UNK, 2X/DAY, (15 GM/60 ML)
     Route: 048
     Dates: start: 20161005
  13. FAMOTIDINE. [Concomitant]
     Active Substance: FAMOTIDINE
     Dosage: 20 MG, 1X/DAY
     Route: 048
     Dates: start: 20160418
  14. INSULIN [Concomitant]
     Active Substance: INSULIN NOS
     Dosage: 46 IU, 2X/DAY, (70/30 REG/NPH MIX)
     Dates: start: 20070910
  15. NEURONTIN [Concomitant]
     Active Substance: GABAPENTIN
     Dosage: 1800 MG, DAILY, (TWO PO Q AM AND FOUR PO Q PM)
     Route: 048
     Dates: start: 20060106
  16. GEMFIBROZIL. [Concomitant]
     Active Substance: GEMFIBROZIL
     Dosage: 600 MG, 2X/DAY
     Route: 048
     Dates: start: 20150729
  17. TRAMADOL. [Concomitant]
     Active Substance: TRAMADOL
     Indication: PAIN
     Dosage: 50 MG, AS NEEDED, (THREE TIMES A DAY)
     Route: 048
     Dates: start: 20160706
  18. HYDROCHLOROTHIAZIDE W/LISINOPRIL [Concomitant]
     Active Substance: HYDROCHLOROTHIAZIDE\LISINOPRIL
     Dosage: 1 DF, 1X/DAY,  [HYDROCHLOROTHIAZIDE 25 MG]/ [LISINOPRIL 20 MG]
     Route: 048
     Dates: start: 20160418
  19. ZADITOR [Concomitant]
     Active Substance: KETOTIFEN FUMARATE
     Dosage: 0.025 %, AS NEEDED, (1 DROP IN EACH EYE EVERY 8-12 HOURS)
     Route: 047
     Dates: start: 20141112
  20. CLOTRIMAZOLE. [Concomitant]
     Active Substance: CLOTRIMAZOLE
     Dosage: 1 %, 2X/DAY, (2-4 WEEKS)
     Dates: start: 20150114
  21. LORTAB [Concomitant]
     Active Substance: ACETAMINOPHEN\HYDROCODONE BITARTRATE
     Indication: PAIN
     Dosage: UNK UNK, AS NEEDED, [HYDROCODONE BITARTRATE 500 MG]/ [PARACETAMOL 5 MG]
     Route: 048
     Dates: start: 20130722
  22. LISINOPRIL. [Concomitant]
     Active Substance: LISINOPRIL
     Dosage: 20 MG, DAILY
     Route: 048
     Dates: start: 20070910
  23. GLUCOPHAGE [Concomitant]
     Active Substance: METFORMIN HYDROCHLORIDE
     Dosage: 1000 MG, 2X/DAY
     Dates: start: 20060713
  24. ZAROXOLYN [Concomitant]
     Active Substance: METOLAZONE
     Dosage: 5 MG, UNK
     Route: 048
     Dates: start: 20050613
  25. CYMBALTA [Concomitant]
     Active Substance: DULOXETINE HYDROCHLORIDE
     Dosage: 60 MG, DAILY
     Route: 048
     Dates: start: 20060713
  26. GEMFIBROZIL. [Concomitant]
     Active Substance: GEMFIBROZIL
     Dosage: 600 MG, 2X/DAY
     Route: 048
     Dates: start: 20160706
  27. ZESTORETIC [Concomitant]
     Active Substance: HYDROCHLOROTHIAZIDE\LISINOPRIL
     Dosage: 1 DF, 1X/DAY,  [HYDROCHLOROTHIAZIDE 25 MG]/ [LISINOPRIL 20 MG]
     Route: 048
     Dates: start: 20150729
  28. LORATADINE. [Concomitant]
     Active Substance: LORATADINE
     Dosage: 10 MG, AS NEEDED, (ONCE DAILY)
     Route: 048
     Dates: start: 20140820
  29. POTASSIUM CHLORIDE. [Concomitant]
     Active Substance: POTASSIUM CHLORIDE
     Dosage: 20 MEQ, 2X/DAY
     Route: 048
     Dates: start: 20070910
  30. PREVACID [Concomitant]
     Active Substance: LANSOPRAZOLE
     Dosage: 30 MG, DAILY
     Route: 048
     Dates: start: 20070910
  31. PRAVASTATIN. [Concomitant]
     Active Substance: PRAVASTATIN
     Dosage: 20 MG, 1X/DAY, (AT BEDTIME)
     Route: 048
     Dates: start: 20160418
  32. VITAMIN B12 [Concomitant]
     Active Substance: CYANOCOBALAMIN
     Dosage: 1 DF, DAILY
     Route: 048
     Dates: start: 20150729
  33. VITAMIN D [Concomitant]
     Active Substance: CHOLECALCIFEROL
     Dosage: 50000 IU, WEEKLY, (ONCE WEEKLY X 12 WEEKS)
     Route: 048
     Dates: start: 20150729

REACTIONS (10)
  - Abscess limb [Unknown]
  - Bone disorder [Unknown]
  - Condition aggravated [Unknown]
  - Feeling abnormal [Unknown]
  - Neuropathy peripheral [Unknown]
  - Intentional product use issue [Unknown]
  - Pain [Unknown]
  - Drug dispensing error [Unknown]
  - Osteomyelitis [Unknown]
  - Intentional product misuse [Unknown]
